FAERS Safety Report 8176341-1 (Version None)
Quarter: 2012Q1

REPORT INFORMATION
  Report Type: 
  Country: None (occurrence: None)
  Receive Date: 20120227
  Receipt Date: 20120227
  Transmission Date: 20120608
  Serious: No
  Sender: FDA-Public Use
  Company Number: None

PATIENT
  Age: 27 Year
  Sex: Male

DRUGS (1)
  1. ALPRAZOLAM [Suspect]
     Indication: GENERALISED ANXIETY DISORDER
     Dosage: 2MG PO QDAY EARLY 2007
     Route: 048

REACTIONS (2)
  - PRODUCT SUBSTITUTION ISSUE [None]
  - DRUG EFFECT DECREASED [None]
